FAERS Safety Report 9583417 (Version 1)
Quarter: 2013Q4

REPORT INFORMATION
  Report Type: Spontaneous
  Country: US (occurrence: US)
  Receive Date: 20131002
  Receipt Date: 20131002
  Transmission Date: 20140711
  Serious: No
  Sender: FDA-Public Use
  Company Number: US-AMGEN-USASP2013046557

PATIENT
  Age: 54 Year
  Sex: Female

DRUGS (3)
  1. ENBREL [Suspect]
     Indication: ANKYLOSING SPONDYLITIS
     Dosage: 50 MG, QWK
     Route: 058
     Dates: start: 20130322
  2. SIMVASTATIN [Concomitant]
     Dosage: 40 MG, UNK
  3. METFORMIN HCL [Concomitant]
     Dosage: 500 MG, UNK

REACTIONS (2)
  - Vomiting [Recovering/Resolving]
  - Headache [Recovering/Resolving]
